FAERS Safety Report 9152467 (Version 1)
Quarter: 2013Q1

REPORT INFORMATION
  Report Type: Spontaneous
  Country: US (occurrence: US)
  Receive Date: 20130308
  Receipt Date: 20130308
  Transmission Date: 20140127
  Serious: No
  Sender: FDA-Public Use
  Company Number: US-MUTUAL PHARMACEUTICAL COMPANY, INC.-ALLP20120001

PATIENT
  Sex: Male
  Weight: 80.81 kg

DRUGS (4)
  1. ALLOPURINOL [Suspect]
     Indication: BLOOD URIC ACID INCREASED
     Route: 048
  2. COLCHICINE [Concomitant]
     Indication: GOUT
     Route: 048
     Dates: end: 2010
  3. COLCRYS 0.6 MG [Concomitant]
     Indication: GOUT
     Route: 048
     Dates: start: 2010
  4. COLCRYS 0.6 MG [Concomitant]
     Route: 048

REACTIONS (3)
  - Arthralgia [Recovered/Resolved]
  - Fall [Recovered/Resolved]
  - Joint range of motion decreased [Recovered/Resolved]
